FAERS Safety Report 8808680 (Version 1)
Quarter: 2012Q4

REPORT INFORMATION
  Report Type: 
  Country: FR (occurrence: FR)
  Receive Date: 20120926
  Receipt Date: 20120926
  Transmission Date: 20130627
  Serious: Yes (Hospitalization)
  Sender: FDA-Public Use
  Company Number: FR-JNJFOC-20120910056

PATIENT
  Age: 83 Year
  Sex: Male

DRUGS (12)
  1. IXPRIM [Suspect]
     Indication: PAIN
     Route: 048
     Dates: start: 201205, end: 201206
  2. SERESTA [Suspect]
     Indication: ANXIETY
     Route: 048
  3. SERESTA [Suspect]
     Indication: ANXIETY
     Route: 048
  4. SERESTA [Suspect]
     Indication: ANXIETY
     Route: 048
     Dates: start: 201205
  5. MADOPAR [Suspect]
     Indication: PARKINSONISM
     Route: 048
  6. MADOPAR [Suspect]
     Indication: PARKINSONISM
     Route: 048
  7. TRANXENE [Suspect]
     Indication: ANXIETY
     Route: 048
     Dates: start: 20120531, end: 201206
  8. EUPRESSYL [Suspect]
     Indication: HYPERTENSION
     Route: 048
  9. LERCAN [Suspect]
     Indication: HYPERTENSION
     Route: 048
  10. IMOVANE [Suspect]
     Indication: INSOMNIA
     Route: 048
  11. EBIXA [Suspect]
     Indication: DEMENTIA ALZHEIMER^S TYPE
     Route: 048
  12. RISPERDAL [Concomitant]
     Indication: PRODUCT USED FOR UNKNOWN INDICATION
     Route: 048
     Dates: start: 201206

REACTIONS (1)
  - Balance disorder [Recovered/Resolved]
